FAERS Safety Report 6275401-X (Version None)
Quarter: 2009Q3

REPORT INFORMATION
  Report Type: 
  Country: None (occurrence: None)
  Receive Date: 20090721
  Receipt Date: 20090720
  Transmission Date: 20100115
  Serious: Yes (Other)
  Sender: FDA-Public Use
  Company Number: GB-BAYER-200912032BNE

PATIENT
  Age: 41 Year
  Sex: Female

DRUGS (2)
  1. SORAFENIB [Suspect]
     Indication: RENAL CELL CARCINOMA
     Route: 048
     Dates: start: 20090416, end: 20090528
  2. EMOLLIENT CREAM (AQUEOUS) [Concomitant]
     Indication: VULVOVAGINAL PAIN
     Route: 061

REACTIONS (3)
  - VULVOVAGINAL DRYNESS [None]
  - VULVOVAGINAL PAIN [None]
  - VULVOVAGINAL PRURITUS [None]
